FAERS Safety Report 11992242 (Version 1)
Quarter: 2016Q1

REPORT INFORMATION
  Report Type: Spontaneous
  Country: US (occurrence: US)
  Receive Date: 20160203
  Receipt Date: 20160203
  Transmission Date: 20160526
  Serious: No
  Sender: FDA-Public Use
  Company Number: US-JNJFOC-20151225945

PATIENT
  Age: 70 Year
  Sex: Male
  Weight: 95.26 kg

DRUGS (2)
  1. TYLENOL 8 HOUR CAPLET [Suspect]
     Active Substance: ACETAMINOPHEN
     Route: 048
  2. TYLENOL 8 HOUR CAPLET [Suspect]
     Active Substance: ACETAMINOPHEN
     Indication: PROCEDURAL PAIN
     Dosage: 2 TABLETS, 1 TIME
     Route: 048
     Dates: start: 20151229, end: 20151229

REACTIONS (1)
  - Expired product administered [Unknown]

NARRATIVE: CASE EVENT DATE: 20151229
